FAERS Safety Report 25871693 (Version 1)
Quarter: 2025Q4

REPORT INFORMATION
  Report Type: Spontaneous
  Country: US (occurrence: US)
  Receive Date: 20251001
  Receipt Date: 20251001
  Transmission Date: 20260117
  Serious: Yes (Death, Other)
  Sender: AMGEN
  Company Number: US-AMGEN-USASP2025192685

PATIENT

DRUGS (6)
  1. RITUXIMAB [Suspect]
     Active Substance: RITUXIMAB
     Indication: Diffuse large B-cell lymphoma
     Dosage: UNK
     Route: 065
  2. PREDNISONE [Suspect]
     Active Substance: PREDNISONE
     Indication: Diffuse large B-cell lymphoma
     Dosage: UNK
     Route: 065
  3. FILGRASTIM [Suspect]
     Active Substance: FILGRASTIM
     Indication: Product used for unknown indication
     Dosage: UNK
     Route: 065
  4. PEGFILGRASTIM [Suspect]
     Active Substance: PEGFILGRASTIM
     Indication: Product used for unknown indication
     Dosage: UNK
     Route: 065
  5. DUVELISIB [Suspect]
     Active Substance: DUVELISIB
     Indication: Peripheral T-cell lymphoma unspecified refractory
     Dosage: UNK
     Route: 065
  6. ROMIDEPSIN [Suspect]
     Active Substance: ROMIDEPSIN
     Indication: Peripheral T-cell lymphoma unspecified refractory
     Dosage: 10 MILLIGRAM/SQ. METER, ON DAYS 1, 8, AND 15 OF A 28-DAY CYCLE
     Route: 040

REACTIONS (34)
  - Septic shock [Fatal]
  - Bacterial sepsis [Fatal]
  - Diffuse large B-cell lymphoma recurrent [Fatal]
  - Epstein-Barr virus infection reactivation [Fatal]
  - Neutropenia [Unknown]
  - Pancytopenia [Unknown]
  - Thrombocytopenia [Unknown]
  - Colitis [Unknown]
  - Appendicitis [Unknown]
  - Cardiac failure [Unknown]
  - Graft versus host disease [Unknown]
  - Febrile neutropenia [Unknown]
  - Enterocolitis [Unknown]
  - Cytomegalovirus viraemia [Unknown]
  - Tuberculosis [Unknown]
  - Pseudomonal bacteraemia [Unknown]
  - Klebsiella bacteraemia [Unknown]
  - Cutaneous T-cell lymphoma [Unknown]
  - Leukocytosis [Unknown]
  - Diarrhoea [Unknown]
  - Alanine aminotransferase increased [Unknown]
  - Sinus tachycardia [Unknown]
  - Rash [Unknown]
  - Hypertransaminasaemia [Unknown]
  - Hypertension [Unknown]
  - Staphylococcal infection [Unknown]
  - Lymph gland infection [Unknown]
  - Upper respiratory tract infection [Unknown]
  - Anaemia [Unknown]
  - Lymphopenia [Unknown]
  - Aspartate aminotransferase increased [Unknown]
  - Fatigue [Unknown]
  - COVID-19 [Unknown]
  - Nausea [Unknown]
